FAERS Safety Report 5948510-X (Version None)
Quarter: 2008Q4

REPORT INFORMATION
  Report Type: 
  Country: None (occurrence: None)
  Receive Date: 20081111
  Receipt Date: 20081110
  Transmission Date: 20090506
  Serious: Yes (Hospitalization)
  Sender: FDA-Public Use
  Company Number: B0545536A

PATIENT
  Age: 29 Year
  Sex: Female
  Weight: 58 kg

DRUGS (4)
  1. CEFUROXIME [Suspect]
     Indication: URINARY TRACT INFECTION
     Route: 042
     Dates: start: 20081022, end: 20081023
  2. ACETAMINOPHEN [Concomitant]
     Indication: ANALGESIA
     Route: 048
     Dates: start: 20081022
  3. CODEINE PHOSPHATE [Concomitant]
     Indication: ANALGESIA
     Route: 048
     Dates: start: 20081022
  4. MEPERIDINE HCL [Concomitant]
     Indication: ANALGESIA
     Route: 030
     Dates: start: 20081022

REACTIONS (4)
  - BLOOD PRESSURE IMMEASURABLE [None]
  - FEELING HOT [None]
  - MALAISE [None]
  - UNRESPONSIVE TO STIMULI [None]
